FAERS Safety Report 8944855 (Version 1)
Quarter: 2012Q4

REPORT INFORMATION
  Report Type: 
  Country: FR (occurrence: FR)
  Receive Date: 20121204
  Receipt Date: 20121204
  Transmission Date: 20130627
  Serious: Yes (Other)
  Sender: FDA-Public Use
  Company Number: FR-009507513-1211FRA011946

PATIENT
  Sex: Female

DRUGS (6)
  1. SINEMET 100 MG / 10 MG COMPRIME SECABLE [Suspect]
     Indication: PARKINSON^S DISEASE
     Dosage: 625 mg, qd
     Route: 048
     Dates: start: 201011
  2. SIFROL [Suspect]
     Indication: PARKINSON^S DISEASE
     Dosage: 1.3 mg, qd
     Route: 048
     Dates: start: 201208
  3. TRIVASTAL [Suspect]
     Indication: PARKINSON^S DISEASE
     Dosage: 100 mg, qd
     Route: 048
     Dates: start: 201208
  4. MANTADIX [Concomitant]
     Dosage: 100 mg, UNK
     Dates: start: 201208
  5. SEROPLEX [Concomitant]
     Dosage: 5 mg, UNK
     Dates: start: 201210
  6. LYSANXIA [Concomitant]
     Dosage: 30 mg, qd
     Dates: start: 2008

REACTIONS (6)
  - Impulse-control disorder [Not Recovered/Not Resolved]
  - Psychomotor hyperactivity [Not Recovered/Not Resolved]
  - Increased appetite [Not Recovered/Not Resolved]
  - Stereotypy [Not Recovered/Not Resolved]
  - Hypersexuality [Not Recovered/Not Resolved]
  - Compulsive shopping [Recovered/Resolved]
